FAERS Safety Report 15195884 (Version 5)
Quarter: 2019Q2

REPORT INFORMATION
  Report Type: Spontaneous
  Country: US (occurrence: US)
  Receive Date: 20180725
  Receipt Date: 20190417
  Transmission Date: 20190711
  Serious: Yes (Death, Hospitalization)
  Sender: FDA-Public Use
  Company Number: US-PFIZER INC-2018041383

PATIENT
  Age: 79 Year
  Sex: Male
  Weight: 76 kg

DRUGS (24)
  1. XALKORI [Suspect]
     Active Substance: CRIZOTINIB
     Dosage: 250 MG, 2X/DAY(ONE IN MORNING AND ONE IN EVENING)
     Route: 048
     Dates: start: 20161229, end: 20180120
  2. INFLUENZA [Concomitant]
     Active Substance: INFLUENZA VIRUS VACCINE
     Dosage: UNK
     Dates: start: 20171123
  3. DECADRON [Concomitant]
     Active Substance: DEXAMETHASONE
     Dosage: 2 MG, 1X/DAY(TAKE 0.5 TABS BY MOUTH DAILY (BEFORE BREAKFAST))
     Route: 048
  4. ZOCOR [Concomitant]
     Active Substance: SIMVASTATIN
     Dosage: 10 MG, 1X/DAY (TAKE 10 MG BY MOUTH NIGHTLY)
     Route: 048
  5. FLORA Q [BIFIDOBACTERIUM BIFIDUM;LACTOBACILLUS ACIDOPHILUS;LACTOBACILL [Concomitant]
     Dosage: 1 DF, DAILY (TAKE 1 CAP BY MOUTH DAILY)
     Route: 048
  6. PILOCAR [PILOCARPINE HYDROCHLORIDE] [Concomitant]
     Dosage: 1 GTT, 3X/DAY (ADMINISTER 1 DROP TO RIGHT EYE THREE (3) TIMES DAILY)
     Route: 047
  7. SENNA [SENNOSIDE A+B] [Concomitant]
     Dosage: 8.6 MG, DAILY
     Route: 048
  8. CYMBALTA [Concomitant]
     Active Substance: DULOXETINE HYDROCHLORIDE
     Dosage: 60 MG, DAILY
     Route: 048
  9. GLUCOPHAGE [Concomitant]
     Active Substance: METFORMIN HYDROCHLORIDE
     Dosage: 500 MG, 2X/DAY (TAKE BY MOUTH TWO (2) TIMES DAILY (WITH MEALS))
     Route: 048
  10. DETROL [Concomitant]
     Active Substance: TOLTERODINE TARTRATE
     Dosage: 2 MG, 2X/DAY (TAKE 2 MG BY MOUTH TWO (2) TIMES A DAY)
     Route: 048
  11. XALKORI [Suspect]
     Active Substance: CRIZOTINIB
     Dosage: 250 MG, 2X/DAY(ONE IN MORNING AND ONE IN EVENING)
     Route: 048
     Dates: start: 20180202
  12. XALKORI [Suspect]
     Active Substance: CRIZOTINIB
     Dosage: 250 MG, 2X/DAY
     Route: 048
     Dates: start: 20161229, end: 201901
  13. BASAGLAR [Concomitant]
     Active Substance: INSULIN GLARGINE
     Dosage: 14 IU, DAILY ((LANTUS, BASAGLAR. 14 UNITS BY SUBCUTANEOUS ROUTE DAILY))
     Route: 058
  14. AMBIEN [Concomitant]
     Active Substance: ZOLPIDEM TARTRATE
     Indication: SLEEP DISORDER
     Dosage: 10 MG, AS NEEDED (TAKE ONE TABLET BY MOUTH EVERY NIGHT AT BEDTIME AS NEEDED FOR SLEEP)
     Route: 048
  15. EMLA [LIDOCAINE;PRILOCAINE] [Concomitant]
     Dosage: UNK (APPLY TO PORT 30-60 MINUTES PRIOR TO APPOINTMENT, COVER WITH PLASTIC WRAP.)
     Route: 061
  16. VITAMIN D3 [Concomitant]
     Active Substance: CHOLECALCIFEROL
     Dosage: 2000 IU, DAILY
     Route: 048
  17. LANTUS [Concomitant]
     Active Substance: INSULIN GLARGINE
     Dosage: 14 IU, DAILY (LANTUS, BASAGLAR. 14 UNITS BY SUBCUTANEOUS ROUTE DAILY)
     Route: 058
  18. RISAQUAD [Concomitant]
     Dosage: 1 DF, DAILY (TAKE 1 CAP BY MOUTH DAILY)
     Route: 048
  19. XALATAN [Concomitant]
     Active Substance: LATANOPROST
     Dosage: 2 GTT, 1X/DAY (ADMINISTER 1 DROP TO BOTH EYES NIGHTLY)
     Route: 047
  20. SYNTHROID [Concomitant]
     Active Substance: LEVOTHYROXINE SODIUM
     Dosage: 50 UG, 1X/DAY (TAKE ONE TABLET BY MOUTH DAILY BEFORE BREAKFAST)
     Route: 048
  21. XALKORI [Suspect]
     Active Substance: CRIZOTINIB
     Indication: LUNG CANCER METASTATIC
     Dosage: 250 MG, 2X/DAY(ONE IN MORNING AND ONE IN EVENING)
     Route: 048
     Dates: start: 2017
  22. ZOFRAN [Concomitant]
     Active Substance: ONDANSETRON HYDROCHLORIDE
     Indication: NAUSEA
     Dosage: 8 MG, AS NEEDED (TAKE ONE TABLET BY MOUTH EVERY 8 HOURS AS NEEDED FOR NAUSEA)
     Route: 048
  23. GLUCOTROL [Concomitant]
     Active Substance: GLIPIZIDE
     Dosage: 5 MG, 1X/DAY (TAKE 1 TAB BY MOUTH DAILY (BEFORE BREAKFAST))
     Route: 048
  24. XARELTO [Concomitant]
     Active Substance: RIVAROXABAN
     Dosage: 20 MG, 1X/DAY (TAKE 1 TAB BY MOUTH DAILY (WITH BREAKFAST))
     Route: 048

REACTIONS (9)
  - Cerebrovascular accident [Fatal]
  - Poor quality product administered [Unknown]
  - Tremor [Not Recovered/Not Resolved]
  - Neoplasm progression [Fatal]
  - Intentional product misuse [Unknown]
  - Dysphagia [Unknown]
  - Product packaging quantity issue [Unknown]
  - Seizure [Unknown]
  - Feeding disorder [Unknown]

NARRATIVE: CASE EVENT DATE: 20190113
